FAERS Safety Report 10638521 (Version 2)
Quarter: 2014Q4

REPORT INFORMATION
  Report Type: Spontaneous
  Country: JP (occurrence: JP)
  Receive Date: 20141208
  Receipt Date: 20141208
  Transmission Date: 20150529
  Serious: Yes (Death, Other)
  Sender: FDA-Public Use
  Company Number: JP-BAYER-2013-052253

PATIENT
  Age: 83 Year
  Sex: Female

DRUGS (8)
  1. BONALON [Concomitant]
     Active Substance: ALENDRONATE SODIUM
     Dosage: DAILY DOSE 35 MG
     Route: 048
     Dates: start: 20080930, end: 20130419
  2. PREDONINE [Concomitant]
     Active Substance: PREDNISOLONE\PREDNISOLONE ACETATE\PREDNISOLONE SODIUM SUCCINATE
     Dosage: DAILY DOSE 5 MG
     Route: 048
     Dates: start: 20091005, end: 20130419
  3. MAGMITT [Concomitant]
     Active Substance: MAGNESIUM OXIDE
     Dosage: DAILY DOSE 2000 MG
     Route: 048
     Dates: start: 20101228, end: 20130419
  4. PARIET [Concomitant]
     Active Substance: RABEPRAZOLE SODIUM
     Dosage: DAILY DOSE 10 MG
     Route: 048
     Dates: start: 20091005, end: 20130419
  5. AMARYL [Concomitant]
     Active Substance: GLIMEPIRIDE
     Dosage: DAILY DOSE 1 MG
     Route: 048
     Dates: start: 20110125, end: 20130419
  6. VOLTAREN [Concomitant]
     Active Substance: DICLOFENAC SODIUM
     Dosage: DAILY DOSE 37.5 MG
     Route: 048
     Dates: start: 20080930, end: 20130419
  7. URSO [Concomitant]
     Active Substance: URSODIOL
     Dosage: DAILY DOSE 600 MG
     Route: 048
     Dates: start: 20080930, end: 20130419
  8. NEXAVAR [Suspect]
     Active Substance: SORAFENIB
     Indication: HEPATOCELLULAR CARCINOMA
     Dosage: 200 MG DAILY
     Route: 048
     Dates: start: 20130404, end: 20130408

REACTIONS (2)
  - Myocardial ischaemia [Fatal]
  - Liver disorder [Recovered/Resolved]

NARRATIVE: CASE EVENT DATE: 20130408
